FAERS Safety Report 25794318 (Version 3)
Quarter: 2025Q4

REPORT INFORMATION
  Report Type: Spontaneous
  Country: US (occurrence: US)
  Receive Date: 20250912
  Receipt Date: 20251103
  Transmission Date: 20260118
  Serious: No
  Sender: Kenvue
  Company Number: US-KENVUE-20250809022

PATIENT
  Sex: Female
  Weight: 69.4 kg

DRUGS (30)
  1. TYLENOL [Suspect]
     Active Substance: ACETAMINOPHEN
     Indication: Headache
     Dosage: UNK
     Route: 065
     Dates: start: 2025
  2. TYLENOL [Suspect]
     Active Substance: ACETAMINOPHEN
     Indication: Flushing
  3. TYLENOL EXTRA STRENGTH [Suspect]
     Active Substance: ACETAMINOPHEN
     Indication: Product used for unknown indication
     Route: 065
  4. ORENITRAM [Concomitant]
     Active Substance: TREPROSTINIL
     Indication: Pulmonary arterial hypertension
     Dosage: UNK
     Route: 065
  5. ORENITRAM [Concomitant]
     Active Substance: TREPROSTINIL
     Indication: Heart disease congenital
     Dosage: 0.125 MILLIGRAM, THRICE A DAY
     Route: 048
     Dates: start: 20250129
  6. ORENITRAM [Concomitant]
     Active Substance: TREPROSTINIL
     Dosage: 0.25 MILLIGRAM, THRICE A DAY
     Route: 048
     Dates: start: 20250129
  7. ORENITRAM [Concomitant]
     Active Substance: TREPROSTINIL
     Dosage: 0.375 MILLIGRAM, THRICE A DAY ((1 TABLET OF 0.25 MG AND 0.125  MG EACH)
     Route: 048
     Dates: start: 20250129
  8. ORENITRAM [Concomitant]
     Active Substance: TREPROSTINIL
     Dosage: 2.5 MG
     Route: 065
  9. ORENITRAM [Concomitant]
     Active Substance: TREPROSTINIL
     Dosage: 0.75 MG TID
     Route: 065
     Dates: start: 2025, end: 2025
  10. ORENITRAM [Concomitant]
     Active Substance: TREPROSTINIL
     Dosage: 1.375 MG, TID
     Route: 065
     Dates: start: 2025, end: 202504
  11. ORENITRAM [Concomitant]
     Active Substance: TREPROSTINIL
     Dosage: 1.5 MG, Q8H
     Route: 048
     Dates: start: 202504, end: 2025
  12. ORENITRAM [Concomitant]
     Active Substance: TREPROSTINIL
     Dosage: 1.875 MG, Q8H
     Route: 048
     Dates: start: 2025, end: 2025
  13. ORENITRAM [Concomitant]
     Active Substance: TREPROSTINIL
     Dosage: 2.25 MG, Q8H
     Route: 048
     Dates: start: 2025, end: 2025
  14. ORENITRAM [Concomitant]
     Active Substance: TREPROSTINIL
     Dosage: 2.5 MG, Q8H
     Route: 048
     Dates: start: 2025, end: 2025
  15. ORENITRAM [Concomitant]
     Active Substance: TREPROSTINIL
     Dosage: 2 MG
     Route: 048
     Dates: start: 202508
  16. ORENITRAM [Concomitant]
     Active Substance: TREPROSTINIL
     Dosage: UNK
     Route: 048
     Dates: start: 20250203
  17. SERTRALINE HYDROCHLORIDE [Concomitant]
     Active Substance: SERTRALINE HYDROCHLORIDE
     Indication: Product used for unknown indication
     Route: 065
  18. TRELEGY ELLIPTA [Concomitant]
     Active Substance: FLUTICASONE FUROATE\UMECLIDINIUM BROMIDE\VILANTEROL TRIFENATATE
     Indication: Product used for unknown indication
     Route: 065
  19. LISINOPRIL [Concomitant]
     Active Substance: LISINOPRIL
     Indication: Product used for unknown indication
     Route: 065
  20. SILDENAFIL CITRATE [Concomitant]
     Active Substance: SILDENAFIL CITRATE
     Indication: Product used for unknown indication
     Route: 065
  21. OXYGEN [Concomitant]
     Active Substance: OXYGEN
     Indication: Product used for unknown indication
     Route: 065
  22. SPIRONOLACTONE [Concomitant]
     Active Substance: SPIRONOLACTONE
     Indication: Product used for unknown indication
     Route: 065
  23. OMEPRAZOLE [Concomitant]
     Active Substance: OMEPRAZOLE
     Indication: Product used for unknown indication
     Route: 065
  24. TORSEMIDE [Concomitant]
     Active Substance: TORSEMIDE
     Indication: Product used for unknown indication
     Route: 065
  25. PRAMIPEXOLE DIHYDROCHLORIDE [Concomitant]
     Active Substance: PRAMIPEXOLE DIHYDROCHLORIDE
     Indication: Product used for unknown indication
     Route: 065
  26. HYDROXYZINE HYDROCHLORIDE [Concomitant]
     Active Substance: HYDROXYZINE HYDROCHLORIDE
     Indication: Product used for unknown indication
     Route: 065
  27. AMBRISENTAN [Concomitant]
     Active Substance: AMBRISENTAN
     Indication: Product used for unknown indication
     Route: 065
  28. ZOFRAN [Concomitant]
     Active Substance: ONDANSETRON HYDROCHLORIDE
     Indication: Nausea
     Route: 065
  29. ZOFRAN [Concomitant]
     Active Substance: ONDANSETRON HYDROCHLORIDE
     Indication: Vomiting
  30. WINREVAIR [Concomitant]
     Active Substance: SOTATERCEPT-CSRK
     Indication: Product used for unknown indication
     Route: 065

REACTIONS (2)
  - Product use in unapproved indication [Unknown]
  - Drug ineffective [Unknown]

NARRATIVE: CASE EVENT DATE: 20250101
